FAERS Safety Report 5978609-3 (Version None)
Quarter: 2008Q4

REPORT INFORMATION
  Report Type: 
  Country: None (occurrence: None)
  Receive Date: 20081204
  Receipt Date: 20081128
  Transmission Date: 20090506
  Serious: Yes (Hospitalization)
  Sender: FDA-Public Use
  Company Number: B0549016A

PATIENT
  Age: 86 Year
  Sex: Female

DRUGS (2)
  1. VALTREX [Suspect]
     Dosage: 250MG PER DAY
     Route: 048
     Dates: start: 20061001, end: 20081013
  2. HYDROCHLOROTHIAZIDE-AMILORIDE HCL [Concomitant]
     Route: 048
     Dates: end: 20081013

REACTIONS (5)
  - ACIDOSIS [None]
  - ANURIA [None]
  - BLOOD CREATINE INCREASED [None]
  - BLOOD UREA INCREASED [None]
  - RENAL FAILURE ACUTE [None]
